FAERS Safety Report 7124061-4 (Version None)
Quarter: 2010Q4

REPORT INFORMATION
  Report Type: 
  Country: None (occurrence: None)
  Receive Date: 20101126
  Receipt Date: 20101115
  Transmission Date: 20110411
  Serious: Yes (Other)
  Sender: FDA-Public Use
  Company Number: CA-ELI_LILLY_AND_COMPANY-CA201010002535

PATIENT
  Age: 75 Year
  Sex: Female

DRUGS (13)
  1. FORTEO [Suspect]
     Indication: OSTEOPOROSIS
     Dosage: 20 UG, DAILY (1/D)
     Route: 058
     Dates: start: 20090501
  2. SIMVASTATIN [Concomitant]
     Dosage: UNK, UNKNOWN
  3. MICARDIS [Concomitant]
     Dosage: UNK, UNKNOWN
  4. HYDROCHLOROTHIAZIDE [Concomitant]
     Dosage: UNK, UNKNOWN
  5. AMLODIPINE [Concomitant]
     Dosage: UNK, UNKNOWN
  6. MAXIDEX [Concomitant]
     Dosage: UNK, UNKNOWN
  7. NEVANAC [Concomitant]
     Dosage: UNK, UNKNOWN
  8. VIGAMOX [Concomitant]
     Dosage: UNK, UNKNOWN
  9. APO-TRIAZIDE [Concomitant]
     Dosage: UNK, UNKNOWN
  10. CALCIUM [Concomitant]
     Dosage: UNK, UNKNOWN
  11. VITAMIN B-12 [Concomitant]
     Dosage: UNK, UNKNOWN
  12. VITAMIN D [Concomitant]
     Dosage: UNK, UNKNOWN
  13. VITAMIN E [Concomitant]
     Dosage: UNK, UNKNOWN

REACTIONS (9)
  - BACK PAIN [None]
  - BONE NEOPLASM MALIGNANT [None]
  - CHEST PAIN [None]
  - HEPATIC NEOPLASM MALIGNANT [None]
  - LUNG DISORDER [None]
  - LUNG NEOPLASM MALIGNANT [None]
  - PAIN [None]
  - PAIN IN EXTREMITY [None]
  - WEIGHT DECREASED [None]
